FAERS Safety Report 25626436 (Version 3)
Quarter: 2025Q3

REPORT INFORMATION
  Report Type: Spontaneous
  Country: US (occurrence: US)
  Receive Date: 20250731
  Receipt Date: 20250905
  Transmission Date: 20251020
  Serious: Yes (Other)
  Sender: RANBAXY
  Company Number: US-SUN PHARMACEUTICAL INDUSTRIES INC-2025R1-519484

PATIENT
  Sex: Male
  Weight: 104.31 kg

DRUGS (2)
  1. FLUOROURACIL [Suspect]
     Active Substance: FLUOROURACIL
     Indication: Actinic keratosis
     Dosage: UNK UNK, BID
     Route: 061
     Dates: end: 20250614
  2. CALCIPOTRIENE [Suspect]
     Active Substance: CALCIPOTRIENE
     Indication: Product used for unknown indication
     Route: 065

REACTIONS (11)
  - Neuropathy peripheral [Unknown]
  - Photosensitivity reaction [Unknown]
  - Skin irritation [Unknown]
  - Erythema [Unknown]
  - Musculoskeletal stiffness [Unknown]
  - Muscle tightness [Unknown]
  - Paraesthesia [Unknown]
  - Myalgia [Unknown]
  - Peripheral swelling [Unknown]
  - Therapy cessation [Unknown]
  - Off label use [Unknown]

NARRATIVE: CASE EVENT DATE: 20250101
